FAERS Safety Report 6978589-8 (Version None)
Quarter: 2010Q3

REPORT INFORMATION
  Report Type: 
  Country: None (occurrence: None)
  Receive Date: 20100913
  Receipt Date: 20100902
  Transmission Date: 20110219
  Serious: Yes (Hospitalization)
  Sender: FDA-Public Use
  Company Number: DE-ROCHE-702180

PATIENT
  Sex: Female
  Weight: 49 kg

DRUGS (7)
  1. CAPECITABINE [Suspect]
     Indication: RECTAL CANCER
     Dosage: D1-33 W/O WEEKENDS, ACTUAL DOSE GIVEN (AS LAST ADMINISTRATION): 1500 MG. DOSE PRIOR SAE:15 FEB 2010
     Route: 048
     Dates: start: 20100121
  2. IMODIUM [Concomitant]
     Route: 048
     Dates: start: 20100217
  3. PASPERTIN [Concomitant]
     Indication: NAUSEA
     Route: 048
     Dates: start: 20100401
  4. PANTOPRAZOLE SODIUM [Concomitant]
     Indication: NAUSEA
     Route: 048
     Dates: start: 20100331
  5. REMERGIL [Concomitant]
     Route: 048
     Dates: start: 20100401
  6. METOPROLOL SUCCINATE [Concomitant]
     Indication: HYPERTENSION
     Route: 048
     Dates: start: 20100217
  7. TOREM [Concomitant]
     Indication: DIURETIC THERAPY
     Route: 048
     Dates: start: 20100429

REACTIONS (4)
  - FAILURE TO ANASTOMOSE [None]
  - PELVIC ABSCESS [None]
  - PLEURAL EFFUSION [None]
  - RENAL FAILURE ACUTE [None]
